FAERS Safety Report 16341079 (Version 2)
Quarter: 2019Q3

REPORT INFORMATION
  Report Type: Spontaneous
  Country: PL (occurrence: PL)
  Receive Date: 20190522
  Receipt Date: 20190701
  Transmission Date: 20191004
  Serious: Yes (Death, Other)
  Sender: FDA-Public Use
  Company Number: PL-ROCHE-2323486

PATIENT
  Age: 68 Year
  Sex: Male
  Weight: 129 kg

DRUGS (1)
  1. ESBRIET [Suspect]
     Active Substance: PIRFENIDONE
     Indication: IDIOPATHIC PULMONARY FIBROSIS
     Route: 048
     Dates: start: 20180312, end: 20190420

REACTIONS (2)
  - Spinal pain [Unknown]
  - Mesenteric artery embolism [Fatal]

NARRATIVE: CASE EVENT DATE: 20190420
